FAERS Safety Report 23627262 (Version 1)
Quarter: 2024Q1

REPORT INFORMATION
  Report Type: Spontaneous
  Country: US (occurrence: None)
  Receive Date: 20240313
  Receipt Date: 20240313
  Transmission Date: 20240410
  Serious: Yes (Hospitalization)
  Sender: FDA-Public Use
  Company Number: None

PATIENT
  Sex: Male
  Weight: 52.5 kg

DRUGS (1)
  1. CISPLATIN [Suspect]
     Active Substance: CISPLATIN
     Dates: end: 20230822

REACTIONS (8)
  - Hypotension [None]
  - Tachycardia [None]
  - Failure to thrive [None]
  - Acute kidney injury [None]
  - Fluid intake reduced [None]
  - Chest pain [None]
  - Leukocytosis [None]
  - Hypernatraemia [None]

NARRATIVE: CASE EVENT DATE: 20231128
